FAERS Safety Report 25909193 (Version 2)
Quarter: 2025Q4

REPORT INFORMATION
  Report Type: Spontaneous
  Country: CN (occurrence: CN)
  Receive Date: 20251011
  Receipt Date: 20251012
  Transmission Date: 20260118
  Serious: Yes (Hospitalization, Other)
  Sender: POINTVIEW HOLDINGS LLC
  Company Number: CN-Pointview-000010

PATIENT
  Age: 51 Year
  Sex: Male

DRUGS (4)
  1. ASPIRIN [Concomitant]
     Active Substance: ASPIRIN
     Indication: Coronary artery stenosis
     Route: 065
  2. CLOPIDOGREL [Concomitant]
     Active Substance: CLOPIDOGREL BISULFATE
     Indication: Coronary artery stenosis
     Route: 065
  3. PRASUGREL [Concomitant]
     Active Substance: PRASUGREL
     Indication: Coronary artery stenosis
     Route: 065
  4. PREDNISONE [Suspect]
     Active Substance: PREDNISONE
     Indication: Autoimmune nephritis
     Route: 065

REACTIONS (3)
  - Atherosclerotic plaque rupture [Recovered/Resolved]
  - Acute myocardial infarction [Recovered/Resolved]
  - Rebound effect [Recovered/Resolved]
